FAERS Safety Report 13985382 (Version 1)
Quarter: 2017Q3

REPORT INFORMATION
  Report Type: Spontaneous
  Country: US (occurrence: None)
  Receive Date: 20170918
  Receipt Date: 20170918
  Transmission Date: 20171128
  Serious: No
  Sender: FDA-Public Use
  Company Number: None

PATIENT
  Age: 57 Year
  Sex: Female

DRUGS (2)
  1. CAPECITABINE 500 MG ACCORD [Suspect]
     Active Substance: CAPECITABINE
     Indication: METASTASES TO LIVER
     Dosage: 4 TABLETS TWICE A DAY FOR 2 WEEKS ON AND 1 WEEK OFF BY MOUTH
     Route: 048
     Dates: start: 20170727, end: 20170823
  2. CAPECITABINE 500 MG ACCORD [Suspect]
     Active Substance: CAPECITABINE
     Indication: METASTASES TO LIVER
     Dosage: 8 TABLETS, TWICE A DAY FOR 2 WEEKS ON AND 1 WEEK OFF BY MOUTH
     Route: 048

REACTIONS (3)
  - Incorrect dose administered [None]
  - Inappropriate schedule of drug administration [None]
  - Diarrhoea [None]

NARRATIVE: CASE EVENT DATE: 20170823
